FAERS Safety Report 9494899 (Version 2)
Quarter: 2013Q3

REPORT INFORMATION
  Report Type: Spontaneous
  Country: JP (occurrence: None)
  Receive Date: 20130828
  Receipt Date: 20130904
  Transmission Date: 20140515
  Serious: Yes (Other)
  Sender: FDA-Public Use
  Company Number: JP-2013-13180

PATIENT
  Age: 73 Year
  Sex: Female

DRUGS (1)
  1. OPC-41061 (TOLVAPTAN) TABLET [Suspect]
     Indication: CERVIX CARCINOMA
     Route: 048
     Dates: start: 20130813, end: 20130813

REACTIONS (2)
  - Thrombosis [None]
  - Pelvic venous thrombosis [None]
